FAERS Safety Report 6662535-0 (Version None)
Quarter: 2010Q1

REPORT INFORMATION
  Report Type: 
  Country: None (occurrence: None)
  Receive Date: 20100329
  Receipt Date: 20100317
  Transmission Date: 20100710
  Serious: Yes (Other)
  Sender: FDA-Public Use
  Company Number: OSCN-NO-1003L-0082

PATIENT
  Age: 58 Year
  Sex: Female

DRUGS (5)
  1. OMNISCAN [Suspect]
     Indication: ACOUSTIC NEUROMA
     Dosage: NR, SINGLE DOSE, I.V.
     Route: 042
     Dates: start: 20040101, end: 20040101
  2. OMNISCAN [Suspect]
     Indication: CARDIOVASCULAR DISORDER
     Dosage: NR, SINGLE DOSE, I.V.
     Route: 042
     Dates: start: 20040101, end: 20040101
  3. OMNISCAN [Suspect]
     Indication: ACOUSTIC NEUROMA
     Dosage: NR, SINGLE DOSE, I.V.
     Route: 042
     Dates: start: 20060101, end: 20060101
  4. OMNISCAN [Suspect]
     Indication: CARDIOVASCULAR DISORDER
     Dosage: NR, SINGLE DOSE, I.V.
     Route: 042
     Dates: start: 20060101, end: 20060101
  5. MAGNEVIST [Suspect]
     Indication: ACOUSTIC NEUROMA
     Dosage: SINGLE DOSE
     Dates: start: 20040101, end: 20040101

REACTIONS (2)
  - CARDIOVASCULAR DISORDER [None]
  - NEPHROGENIC SYSTEMIC FIBROSIS [None]
